FAERS Safety Report 7253040-1 (Version None)
Quarter: 2011Q1

REPORT INFORMATION
  Report Type: 
  Country: None (occurrence: None)
  Receive Date: 20110129
  Receipt Date: 20100308
  Transmission Date: 20110831
  Serious: No
  Sender: FDA-Public Use
  Company Number: US-ABBOTT-10P-163-0631939-00

PATIENT
  Sex: Male
  Weight: 78.542 kg

DRUGS (6)
  1. HUMIRA [Suspect]
     Indication: RHEUMATOID ARTHRITIS
     Dosage: SKIPPED ABOUT 2 WEEKS IN FEB 2010
     Route: 058
     Dates: start: 20100201, end: 20100201
  2. ALPRAZOLAM [Concomitant]
     Indication: ANXIETY
  3. METHOTREXATE [Concomitant]
     Indication: RHEUMATOID ARTHRITIS
     Route: 050
  4. HUMIRA [Suspect]
     Route: 050
     Dates: start: 20090101, end: 20100201
  5. HUMIRA [Suspect]
     Route: 058
     Dates: start: 20060101, end: 20090101
  6. HYDROCODONE [Concomitant]
     Indication: PRODUCT USED FOR UNKNOWN INDICATION

REACTIONS (3)
  - APHONIA [None]
  - DRUG EFFECT DECREASED [None]
  - INFLUENZA [None]
